FAERS Safety Report 16411720 (Version 1)
Quarter: 2019Q2

REPORT INFORMATION
  Report Type: Spontaneous
  Country: CH (occurrence: CH)
  Receive Date: 20190610
  Receipt Date: 20190610
  Transmission Date: 20190711
  Serious: Yes (Death)
  Sender: FDA-Public Use
  Company Number: CH-CELGENEUS-CHE-20190602685

PATIENT
  Sex: Female
  Weight: 60 kg

DRUGS (6)
  1. ENASIDENIB [Suspect]
     Active Substance: ENASIDENIB
     Indication: ACUTE MYELOID LEUKAEMIA
     Dosage: 100 MILLIGRAM
     Route: 065
     Dates: start: 20190503, end: 20190528
  2. BACTRIM [Concomitant]
     Active Substance: SULFAMETHOXAZOLE\TRIMETHOPRIM
     Indication: PROPHYLAXIS
     Dosage: 800-160 MG
     Route: 065
     Dates: start: 20180613, end: 20190528
  3. VENETOCLAX. [Concomitant]
     Active Substance: VENETOCLAX
     Indication: ACUTE MYELOID LEUKAEMIA
     Dosage: 100 MILLIGRAM
     Route: 065
     Dates: start: 20181213, end: 20190425
  4. DECITABINE. [Concomitant]
     Active Substance: DECITABINE
     Route: 041
     Dates: start: 20190121
  5. TAVANIC [Concomitant]
     Active Substance: LEVOFLOXACIN
     Indication: FEBRILE NEUTROPENIA
     Route: 065
     Dates: start: 20190501, end: 20190519
  6. DECITABINE. [Concomitant]
     Active Substance: DECITABINE
     Indication: ACUTE MYELOID LEUKAEMIA
     Route: 041
     Dates: start: 20181213

REACTIONS (1)
  - Acute myeloid leukaemia [Fatal]
